FAERS Safety Report 4883031-7 (Version None)
Quarter: 2005Q4

REPORT INFORMATION
  Report Type: 
  Country: None (occurrence: None)
  Receive Date: 20051201
  Receipt Date: 20050831
  Transmission Date: 20060501
  Serious: No
  Sender: FDA-Public Use
  Company Number: 2005PV001774

PATIENT
  Age: 36 Year
  Sex: Female
  Weight: 76.2043 kg

DRUGS (4)
  1. BYETTA [Suspect]
     Indication: DIABETES MELLITUS NON-INSULIN-DEPENDENT
     Dosage: SEE IMAGE
     Route: 058
     Dates: start: 20050724, end: 20050822
  2. BYETTA [Suspect]
     Indication: DIABETES MELLITUS NON-INSULIN-DEPENDENT
     Dosage: SEE IMAGE
     Route: 058
     Dates: start: 20050822, end: 20050824
  3. FLEXERIL [Concomitant]
  4. DARVOCET [Concomitant]

REACTIONS (6)
  - DECREASED APPETITE [None]
  - DIZZINESS [None]
  - HYPOAESTHESIA [None]
  - SYNCOPE [None]
  - VOMITING [None]
  - WEIGHT DECREASED [None]
